FAERS Safety Report 21522050 (Version 1)
Quarter: 2022Q4

REPORT INFORMATION
  Report Type: Other
  Country: None (occurrence: US)
  Receive Date: 20221028
  Receipt Date: 20221028
  Transmission Date: 20230112
  Serious: Yes (Hospitalization, Other)
  Sender: FDA-Public Use
  Company Number: US-B.Braun Medical Inc.-2134279

PATIENT
  Age: 17 Year
  Sex: Female

DRUGS (1)
  1. ACETAMINOPHEN [Suspect]
     Active Substance: ACETAMINOPHEN

REACTIONS (5)
  - Intentional overdose [Recovered/Resolved]
  - Abdominal pain [Recovered/Resolved]
  - Depressed level of consciousness [Recovered/Resolved]
  - Apnoea [Recovered/Resolved]
  - Blood lactic acid increased [Recovered/Resolved]
